FAERS Safety Report 8792079 (Version 1)
Quarter: 2012Q4

REPORT INFORMATION
  Report Type: 
  Country: CO (occurrence: CO)
  Receive Date: 20120918
  Receipt Date: 20120918
  Transmission Date: 20130627
  Serious: Yes (Hospitalization, Other)
  Sender: FDA-Public Use
  Company Number: CO-PFIZER INC-2012229826

PATIENT
  Sex: Male

DRUGS (1)
  1. SUTENT [Suspect]
     Indication: RENAL CANCER
     Dosage: UNK
     Dates: start: 20110216, end: 20111201

REACTIONS (4)
  - Diarrhoea [Unknown]
  - Urinary incontinence [Unknown]
  - Faecal incontinence [Unknown]
  - Disorientation [Unknown]
